FAERS Safety Report 6686648-2 (Version None)
Quarter: 2010Q2

REPORT INFORMATION
  Report Type: 
  Country: None (occurrence: None)
  Receive Date: 20100419
  Receipt Date: 20091124
  Transmission Date: 20101027
  Serious: Yes (Life-Threatening)
  Sender: FDA-Public Use
  Company Number: JP-SANOFI-AVENTIS-2009SA004477

PATIENT
  Age: 56 Year
  Sex: Male

DRUGS (2)
  1. ELPLAT [Suspect]
     Indication: RECTAL CANCER
     Route: 041
  2. XELODA [Suspect]
     Indication: RECTAL CANCER
     Dates: start: 20091028, end: 20091111

REACTIONS (1)
  - LARGE INTESTINE PERFORATION [None]
